FAERS Safety Report 16287921 (Version 1)
Quarter: 2019Q2

REPORT INFORMATION
  Report Type: Spontaneous
  Country: US (occurrence: US)
  Receive Date: 20190508
  Receipt Date: 20190508
  Transmission Date: 20190711
  Serious: Yes (Other)
  Sender: FDA-Public Use
  Company Number: US-BAUSCH-BL-2019-010105

PATIENT
  Age: 58 Year
  Sex: Male

DRUGS (21)
  1. PROLENSA [Suspect]
     Active Substance: BROMFENAC SODIUM
     Dosage: LEFT EYE (OS)
     Route: 065
     Dates: start: 20190322
  2. TACROLIMUS. [Concomitant]
     Active Substance: TACROLIMUS
     Indication: PRODUCT USED FOR UNKNOWN INDICATION
     Dosage: 0.5 (UNITS UNKNOWN)
     Route: 048
     Dates: start: 20190226
  3. BUDESONIDE. [Concomitant]
     Active Substance: BUDESONIDE
     Indication: PRODUCT USED FOR UNKNOWN INDICATION
     Dosage: 3 (UNIT UNSPECIFIED)
     Dates: start: 20190226
  4. CLARITIN [Concomitant]
     Active Substance: LORATADINE
     Indication: PRODUCT USED FOR UNKNOWN INDICATION
     Dates: start: 20190226
  5. ESCITALOPRAM [Concomitant]
     Active Substance: ESCITALOPRAM OXALATE
     Indication: PRODUCT USED FOR UNKNOWN INDICATION
     Dosage: 20 (UNIT UNSPECIFIED)
     Route: 048
     Dates: start: 20190226
  6. ONDANSETRON [Concomitant]
     Active Substance: ONDANSETRON
     Indication: PRODUCT USED FOR UNKNOWN INDICATION
     Dosage: 8 (UNIT UNSPECIFIED)
     Dates: start: 20190226
  7. PREDNISOLONE ACETATE. [Suspect]
     Active Substance: PREDNISOLONE ACETATE
     Indication: PRODUCT USED FOR UNKNOWN INDICATION
     Dosage: LEFT EYE (OS)
     Route: 065
     Dates: start: 20190307
  8. DILTIAZEM. [Concomitant]
     Active Substance: DILTIAZEM
     Indication: PRODUCT USED FOR UNKNOWN INDICATION
     Dosage: 60 (UNSPECIFIED)
     Route: 048
     Dates: start: 20190226
  9. VITAMIN D3 [Concomitant]
     Active Substance: CHOLECALCIFEROL
     Indication: PRODUCT USED FOR UNKNOWN INDICATION
     Dosage: 400 (UNITS UNKNOWN)
     Dates: start: 20190226
  10. HUMALOG [Concomitant]
     Active Substance: INSULIN LISPRO
     Indication: PRODUCT USED FOR UNKNOWN INDICATION
     Dosage: 100 (UNIT UNSPECIFIED)
     Dates: start: 20190226
  11. ALBUTEROL SULFATE. [Concomitant]
     Active Substance: ALBUTEROL SULFATE
     Indication: PRODUCT USED FOR UNKNOWN INDICATION
     Dosage: 1 NEB Q4-6 H PRN
     Dates: start: 20190226
  12. PROLENSA [Suspect]
     Active Substance: BROMFENAC SODIUM
     Indication: PRODUCT USED FOR UNKNOWN INDICATION
     Dosage: LEFT EYE (OS)
     Route: 065
  13. OFLOXACIN OPHTHALMIC [Suspect]
     Active Substance: OFLOXACIN
     Dosage: LEFT EYE (OS)
     Route: 065
     Dates: start: 20190318
  14. PREDNISONE. [Concomitant]
     Active Substance: PREDNISONE
     Indication: PRODUCT USED FOR UNKNOWN INDICATION
     Dosage: 5 (UNIT UNSPECIFIED)
     Dates: start: 20190226
  15. COMPLETE MULTIVITAMIN [Concomitant]
     Active Substance: VITAMINS
     Indication: PRODUCT USED FOR UNKNOWN INDICATION
     Dates: start: 20190226
  16. OFLOXACIN OPHTHALMIC [Suspect]
     Active Substance: OFLOXACIN
     Indication: PRODUCT USED FOR UNKNOWN INDICATION
     Dosage: LEFT EYE (OS)
     Route: 065
  17. OFLOXACIN OPHTHALMIC [Suspect]
     Active Substance: OFLOXACIN
     Dosage: LEFT EYE (OS)
     Route: 065
     Dates: start: 20190322
  18. FOLIC ACID. [Concomitant]
     Active Substance: FOLIC ACID
     Indication: PRODUCT USED FOR UNKNOWN INDICATION
     Dosage: 1 (UNIT UNSPECIFIED)
     Route: 048
     Dates: start: 20190226
  19. VORICONAZOLE. [Concomitant]
     Active Substance: VORICONAZOLE
     Indication: PRODUCT USED FOR UNKNOWN INDICATION
     Dosage: 200 (UNITS UNKNOWN)
     Dates: start: 20190226
  20. PROLENSA [Suspect]
     Active Substance: BROMFENAC SODIUM
     Dosage: LEFT EYE (OS)
     Route: 065
     Dates: start: 20190318
  21. ACYCLOVIR. [Concomitant]
     Active Substance: ACYCLOVIR
     Indication: PRODUCT USED FOR UNKNOWN INDICATION
     Dosage: 400 (UNIT UNSPECIFIED)
     Dates: start: 20190226

REACTIONS (5)
  - Burning sensation [Unknown]
  - Pain [Unknown]
  - Corneal disorder [Unknown]
  - Punctate keratitis [Unknown]
  - Intraocular pressure increased [Unknown]

NARRATIVE: CASE EVENT DATE: 20190315
